FAERS Safety Report 21267478 (Version 1)
Quarter: 2022Q3

REPORT INFORMATION
  Report Type: Spontaneous
  Country: US (occurrence: US)
  Receive Date: 20220829
  Receipt Date: 20220829
  Transmission Date: 20221027
  Serious: Yes (Other)
  Sender: FDA-Public Use
  Company Number: US-HALEON-USCH2022GSK030403

PATIENT
  Age: 39 Year
  Sex: Male

DRUGS (2)
  1. TUMS ULTRA [Suspect]
     Active Substance: CALCIUM CARBONATE
     Indication: Dyspepsia
     Dosage: UNK
  2. OMEPRAZOLE [Concomitant]
     Active Substance: OMEPRAZOLE
     Indication: Product used for unknown indication
     Dosage: UNK

REACTIONS (10)
  - Milk-alkali syndrome [Unknown]
  - Pancreatitis acute [Recovered/Resolved]
  - Renal failure [Unknown]
  - Diabetic ketoacidosis [Unknown]
  - Abdominal pain upper [Unknown]
  - Pain [Unknown]
  - Nausea [Unknown]
  - Leukocytosis [Unknown]
  - Hypercalcaemia [Unknown]
  - Metabolic alkalosis [Unknown]
